FAERS Safety Report 9559886 (Version 2)
Quarter: 2014Q3

REPORT INFORMATION
  Report Type: Spontaneous
  Country: US (occurrence: None)
  Receive Date: 20130909
  Receipt Date: 20140908
  Transmission Date: 20150326
  Serious: Yes (Other)
  Sender: FDA-Public Use
  Company Number: 380520

PATIENT
  Age: 65 Year
  Sex: Female
  Weight: 77.1 kg

DRUGS (9)
  1. LASIX [Concomitant]
     Active Substance: FUROSEMIDE
  2. ELOCON (MOMETASONE FUROATE) [Concomitant]
  3. ADIPEX-P [Concomitant]
     Active Substance: PHENTERMINE HYDROCHLORIDE
  4. TYLENOL WITH CODEINE NO. 4 (CODEINE PHOSPHATE, PARACETAMOLZ) [Concomitant]
  5. KLOR-CON M20 (POTASSIUM CHLORIDE) [Concomitant]
  6. VICTOZA [Suspect]
     Active Substance: LIRAGLUTIDE
     Indication: TYPE 2 DIABETES MELLITUS
     Dosage: 1.8 MG QD, SUBCUTANEOUS
     Route: 058
     Dates: start: 20130418, end: 20130604
  7. ANTIVERT (MECLOZINE HYDROCHLORIDE, NICOTINIC ACID) [Concomitant]
  8. NOVOLIN 70/30 (INSULIN HUMAN) [Concomitant]
  9. METFORMIN [Concomitant]
     Active Substance: METFORMIN HYDROCHLORIDE

REACTIONS (1)
  - Pancreatitis [None]

NARRATIVE: CASE EVENT DATE: 20130604
